FAERS Safety Report 6523656-6 (Version None)
Quarter: 2009Q4

REPORT INFORMATION
  Report Type: 
  Country: None (occurrence: None)
  Receive Date: 20091231
  Receipt Date: 20091222
  Transmission Date: 20100525
  Serious: Yes (Death)
  Sender: FDA-Public Use
  Company Number: US-JNJFOC-20091105252

PATIENT
  Sex: Male
  Weight: 90.27 kg

DRUGS (13)
  1. REMICADE [Suspect]
     Indication: COLITIS ULCERATIVE
     Dosage: 1-3 PREVIOUS INFUSIONS
     Route: 042
  2. HEPARIN [Suspect]
     Indication: DRUG USE FOR UNKNOWN INDICATION
     Route: 058
  3. HYDROCORTISONE [Suspect]
     Indication: DRUG USE FOR UNKNOWN INDICATION
  4. TPN [Concomitant]
  5. SODIUM BICARBONATE [Concomitant]
  6. NITAZOXANIDE [Concomitant]
  7. SYNTHROID [Concomitant]
  8. ZINC OXIDE [Concomitant]
  9. MULTIPLE VITAMIN [Concomitant]
  10. IMODIUM [Concomitant]
  11. BENADRYL [Concomitant]
  12. TYLENOL (CAPLET) [Concomitant]
  13. ZOFRAN [Concomitant]

REACTIONS (9)
  - BLOOD CULTURE POSITIVE [None]
  - CORONARY ARTERY STENOSIS [None]
  - DEEP VEIN THROMBOSIS [None]
  - ESCHERICHIA URINARY TRACT INFECTION [None]
  - GASTROINTESTINAL HAEMORRHAGE [None]
  - PARASITIC TEST POSITIVE [None]
  - RENAL FAILURE ACUTE [None]
  - RENAL TUBULAR NECROSIS [None]
  - SPLEEN CONGESTION [None]
